FAERS Safety Report 11839516 (Version 1)
Quarter: 2015Q4

REPORT INFORMATION
  Report Type: Report from Study
  Country: BR (occurrence: BR)
  Receive Date: 20151216
  Receipt Date: 20151216
  Transmission Date: 20160305
  Serious: Yes (Other)
  Sender: FDA-Public Use
  Company Number: PHHY2015BR164420

PATIENT
  Sex: Male
  Weight: 57 kg

DRUGS (1)
  1. EXJADE [Suspect]
     Active Substance: DEFERASIROX
     Indication: THALASSAEMIA
     Dosage: 2 DF (20 MG/KG), QD
     Route: 048

REACTIONS (8)
  - Pyrexia [Unknown]
  - Arthralgia [Unknown]
  - Rash [Unknown]
  - Fear [Unknown]
  - Dengue fever [Unknown]
  - Eye pain [Unknown]
  - Bone pain [Unknown]
  - Oedema peripheral [Unknown]
